FAERS Safety Report 18396961 (Version 1)
Quarter: 2020Q4

REPORT INFORMATION
  Report Type: Spontaneous
  Country: US (occurrence: US)
  Receive Date: 20201016
  Receipt Date: 20201016
  Transmission Date: 20210114
  Serious: No
  Sender: FDA-Public Use
  Company Number: None

PATIENT
  Age: 57 Year
  Sex: Male

DRUGS (1)
  1. REVLIMID [Suspect]
     Active Substance: LENALIDOMIDE
     Indication: ANGIOIMMUNOBLASTIC T-CELL LYMPHOMA
     Dosage: ?          OTHER FREQUENCY:DAILY FOR 21D/28D;?
     Route: 048
     Dates: start: 20201015

REACTIONS (1)
  - Off label use [None]

NARRATIVE: CASE EVENT DATE: 20201014
